FAERS Safety Report 8075356-1 (Version None)
Quarter: 2012Q1

REPORT INFORMATION
  Report Type: 
  Country: None (occurrence: None)
  Receive Date: 20120127
  Receipt Date: 20120119
  Transmission Date: 20120608
  Serious: Yes (Other)
  Sender: FDA-Public Use
  Company Number: US-BAYER-2012-008055

PATIENT
  Age: 31 Year
  Sex: Female

DRUGS (3)
  1. ANTIPSYCHOTICS [Concomitant]
  2. ZOLOFT [Concomitant]
  3. YAZ [Suspect]
     Indication: CONTRACEPTION

REACTIONS (4)
  - SKIN DISCOLOURATION [None]
  - PAIN IN EXTREMITY [None]
  - THROMBOPHLEBITIS SUPERFICIAL [None]
  - OEDEMA PERIPHERAL [None]
